FAERS Safety Report 9390192 (Version 2)
Quarter: 2013Q3

REPORT INFORMATION
  Report Type: Spontaneous
  Country: US (occurrence: US)
  Receive Date: 20130708
  Receipt Date: 20130904
  Transmission Date: 20140515
  Serious: No
  Sender: FDA-Public Use
  Company Number: US-AMGEN-USASP2013033995

PATIENT
  Age: 59 Year
  Sex: Male
  Weight: 91.16 kg

DRUGS (2)
  1. ENBREL [Suspect]
     Indication: PSORIATIC ARTHROPATHY
     Dosage: 50 MG, EVERY 7 DAYS
     Route: 058
     Dates: start: 20130128, end: 201305
  2. ENBREL [Suspect]
     Indication: PSORIASIS
     Dosage: UNK
     Route: 058

REACTIONS (8)
  - Fatigue [Not Recovered/Not Resolved]
  - Asthenia [Not Recovered/Not Resolved]
  - Vertigo [Recovered/Resolved]
  - Blood testosterone abnormal [Recovered/Resolved]
  - Oestriol abnormal [Recovered/Resolved]
  - Lethargy [Recovered/Resolved]
  - Influenza like illness [Recovered/Resolved]
  - Dizziness [Recovered/Resolved]
